FAERS Safety Report 8903607 (Version 1)
Quarter: 2012Q4

REPORT INFORMATION
  Report Type: 
  Country: SE (occurrence: SE)
  Receive Date: 20121112
  Receipt Date: 20121112
  Transmission Date: 20130627
  Serious: Yes (Hospitalization)
  Sender: FDA-Public Use
  Company Number: SE-PFIZER INC-2012279182

PATIENT
  Age: 72 Year
  Sex: Male
  Weight: 87 kg

DRUGS (8)
  1. GENOTROPIN [Suspect]
     Indication: GROWTH HORMONE DEFICIENCY
     Dosage: 0.2 mg, 1x/day,7 injections/week
     Route: 058
     Dates: start: 20040507
  2. LEVOTHYROXINE [Concomitant]
     Indication: TSH DECREASED
     Dosage: UNK
     Dates: start: 19940515
  3. PLENDIL [Concomitant]
     Indication: ESSENTIAL HYPERTENSION
     Dosage: UNK
     Dates: start: 19981112
  4. CORTISONE ACETATE [Concomitant]
     Indication: ACTH DECREASED
     Dosage: UNK
     Dates: start: 19940515
  5. TESTOSTERONE [Concomitant]
     Indication: LUTEINISING HORMONE DEFICIENCY
     Dosage: UNK
     Dates: start: 19940515
  6. TESTOSTERONE [Concomitant]
     Indication: FOLLICLE-STIMULATING HORMONE DEFICIENCY
  7. NORMORIX [Concomitant]
     Indication: UTERINE CONTRACTIONS ABNORMAL
     Dosage: UNK
     Dates: start: 19970515
  8. SELOKEN ZOC [Concomitant]
     Indication: HYPERTENSION
     Dosage: UNK
     Dates: start: 20050513

REACTIONS (1)
  - Eye disorder [Unknown]
